FAERS Safety Report 4993387-2 (Version None)
Quarter: 2006Q2

REPORT INFORMATION
  Report Type: 
  Country: None (occurrence: None)
  Receive Date: 20060505
  Receipt Date: 20060418
  Transmission Date: 20061013
  Serious: Yes (Death, Hospitalization)
  Sender: FDA-Public Use
  Company Number: IT-AVENTIS-200614145GDDC

PATIENT
  Age: 76 Year
  Sex: Male

DRUGS (10)
  1. RIFADIN [Suspect]
     Indication: PNEUMONIA LEGIONELLA
     Route: 042
     Dates: start: 20060228, end: 20060308
  2. LEVOFLOXACIN [Suspect]
     Indication: PNEUMONIA LEGIONELLA
     Route: 042
     Dates: start: 20060302, end: 20060316
  3. CLARITHROMYCIN [Suspect]
     Indication: PNEUMONIA LEGIONELLA
     Route: 042
     Dates: start: 20060227, end: 20060308
  4. RANITIDINE [Concomitant]
     Dosage: DOSE: 3 UNITS
  5. MORPHINE [Concomitant]
  6. FUROSEMIDE [Concomitant]
  7. FOLINA [Concomitant]
     Dosage: DOSE: 1 UNIT
  8. FERRIC GLUCONATE [Concomitant]
  9. ENOXAPARIN SODIUM [Concomitant]
     Dosage: DOSE: 4,000
     Route: 058
  10. ALBUMIN [Concomitant]
     Indication: PNEUMONIA LEGIONELLA

REACTIONS (2)
  - HEPATITIS CHOLESTATIC [None]
  - PNEUMONIA LEGIONELLA [None]
